FAERS Safety Report 15321941 (Version 1)
Quarter: 2018Q3

REPORT INFORMATION
  Report Type: Spontaneous
  Country: DE (occurrence: DE)
  Receive Date: 20180827
  Receipt Date: 20180827
  Transmission Date: 20181010
  Serious: Yes (Hospitalization, Other)
  Sender: FDA-Public Use
  Company Number: DE-PFIZER INC-2018339031

PATIENT
  Age: 35 Year
  Sex: Female

DRUGS (3)
  1. TRIPTOFEM [Suspect]
     Active Substance: TRIPTORELIN ACETATE
     Indication: MANAGEMENT OF REPRODUCTION
  2. FRAGMIN P FORTE [Suspect]
     Active Substance: DALTEPARIN SODIUM
     Dosage: UNK
  3. BEMFOLA [Suspect]
     Active Substance: FOLLITROPIN
     Indication: MANAGEMENT OF REPRODUCTION

REACTIONS (2)
  - Ovarian cyst ruptured [Recovered/Resolved]
  - Intra-abdominal haemorrhage [Recovered/Resolved]

NARRATIVE: CASE EVENT DATE: 20180117
